FAERS Safety Report 25637231 (Version 2)
Quarter: 2025Q3

REPORT INFORMATION
  Report Type: Report from Study
  Country: CA (occurrence: CA)
  Receive Date: 20250804
  Receipt Date: 20250901
  Transmission Date: 20251020
  Serious: Yes (Other)
  Sender: SAMSUNG BIOEPIS
  Company Number: CA-SAMSUNG BIOEPIS-SB-2025-26119

PATIENT
  Age: 73 Year
  Sex: Female

DRUGS (1)
  1. RENFLEXIS [Suspect]
     Active Substance: INFLIXIMAB-ABDA
     Indication: Crohn^s disease
     Dates: start: 20250714

REACTIONS (2)
  - Haematochezia [Not Recovered/Not Resolved]
  - Dizziness [Recovered/Resolved]

NARRATIVE: CASE EVENT DATE: 20250724
